FAERS Safety Report 6105097-9 (Version None)
Quarter: 2009Q1

REPORT INFORMATION
  Report Type: 
  Country: None (occurrence: None)
  Receive Date: 20090306
  Receipt Date: 20090302
  Transmission Date: 20090719
  Serious: Yes (Hospitalization)
  Sender: FDA-Public Use
  Company Number: JP-AVENTIS-200910472JP

PATIENT
  Age: 86 Year
  Sex: Female

DRUGS (5)
  1. LASIX [Suspect]
     Dosage: DOSE: 20MG HALF TAB
     Route: 048
     Dates: start: 20080101, end: 20080101
  2. BAKUMONDOUTO [Suspect]
     Dates: start: 20050101
  3. SHAKUYAKUKANZOUTOU [Suspect]
     Dates: start: 20080101
  4. SHAKUYAKUKANZOUTOU [Suspect]
     Dates: start: 20080101
  5. ANTIHYPERTENSIVES [Concomitant]

REACTIONS (2)
  - HYPOKALAEMIA [None]
  - PSEUDOALDOSTERONISM [None]
